FAERS Safety Report 6552692-9 (Version None)
Quarter: 2010Q1

REPORT INFORMATION
  Report Type: 
  Country: None (occurrence: None)
  Receive Date: 20100121
  Receipt Date: 20100104
  Transmission Date: 20100710
  Serious: Yes (Death)
  Sender: FDA-Public Use
  Company Number: 2010SCPR000131

PATIENT
  Age: 74 Year
  Sex: Male

DRUGS (9)
  1. HYDRALAZINE (HYDRALAZINE HYDROCHLORIDE) UNKNOWN [Suspect]
     Indication: DRUG USE FOR UNKNOWN INDICATION
     Dosage: ORAL
     Route: 048
  2. BENZODIAZEPINE (BENZODIAZEPINE) UNKNOWN [Suspect]
     Indication: DRUG USE FOR UNKNOWN INDICATION
     Dosage: ORAL
     Route: 048
  3. RANOLAZINE [Suspect]
     Indication: DRUG USE FOR UNKNOWN INDICATION
     Dosage: ORAL
     Route: 048
  4. ANGIOTENSIN CONVERTING ENZYME INHIBITOR (ANGIOTENSIN CONVERTING ENZYME [Suspect]
     Indication: DRUG USE FOR UNKNOWN INDICATION
     Dosage: ORAL
     Route: 048
  5. NITROGLYCERIN [Suspect]
     Indication: DRUG USE FOR UNKNOWN INDICATION
     Dosage: ORAL
     Route: 048
  6. ACETAMINOPHEN AND HYDROCODONE DITARTRATE [Suspect]
     Indication: DRUG USE FOR UNKNOWN INDICATION
     Dosage: ORAL
     Route: 048
  7. METOPROLOL TARTRATE [Suspect]
     Indication: DRUG USE FOR UNKNOWN INDICATION
     Dosage: ORAL
     Route: 048
  8. SERTRALINE (SERTRALINE) UNKNOWN [Suspect]
     Indication: DRUG USE FOR UNKNOWN INDICATION
     Dosage: ORAL
     Route: 048
  9. CARDIAC GLYCOSIDES (CARDIAC GLYCOSIDES) UNKNOWN [Suspect]
     Indication: DRUG USE FOR UNKNOWN INDICATION
     Dosage: ORAL
     Route: 048

REACTIONS (2)
  - COMPLETED SUICIDE [None]
  - POISONING [None]
